FAERS Safety Report 10349446 (Version 1)
Quarter: 2014Q3

REPORT INFORMATION
  Report Type: Spontaneous
  Country: SE (occurrence: SE)
  Receive Date: 20140730
  Receipt Date: 20140730
  Transmission Date: 20150326
  Serious: Yes (Other)
  Sender: FDA-Public Use
  Company Number: SE-AMGEN-SWESP2014056020

PATIENT
  Age: 67 Year
  Sex: Male

DRUGS (14)
  1. XGEVA [Suspect]
     Active Substance: DENOSUMAB
     Indication: METASTASES TO BONE
     Dosage: 120 MG, QMO
     Route: 058
     Dates: start: 201402
  2. CITALOPRAM [Concomitant]
     Active Substance: CITALOPRAM HYDROBROMIDE
     Dosage: 20 MG, UNK
  3. KALCIPOS-D [Concomitant]
     Active Substance: CALCIUM CARBONATE\CHOLECALCIFEROL
     Dosage: UNK
  4. DICLOFENAC T RATIOPHARM [Concomitant]
     Dosage: 50 MG, UNK
  5. ALVEDON [Concomitant]
     Active Substance: ACETAMINOPHEN
     Dosage: 1 G, UNK
  6. ZOPICLONE [Concomitant]
     Active Substance: ZOPICLONE
     Dosage: UNK
  7. BEHEPAN                            /00056201/ [Concomitant]
     Dosage: 1 MG, UNK
  8. SUPREFACT [Concomitant]
     Active Substance: BUSERELIN
     Dosage: UNK
  9. SOBRIL [Concomitant]
     Active Substance: OXAZEPAM
     Dosage: UNK
  10. LACTULOSE. [Concomitant]
     Active Substance: LACTULOSE
     Dosage: UNK
  11. DOLCONTIN                          /00036302/ [Concomitant]
     Active Substance: MORPHINE
     Dosage: 100 MG, UNK
  12. BETAPRED [Concomitant]
     Active Substance: BETAMETHASONE SODIUM PHOSPHATE
     Dosage: UNK
  13. BICALUTAMIDE. [Concomitant]
     Active Substance: BICALUTAMIDE
     Dosage: UNK
  14. CILAXORAL [Concomitant]
     Dosage: UNK

REACTIONS (1)
  - Osteonecrosis [Not Recovered/Not Resolved]
